FAERS Safety Report 19797465 (Version 1)
Quarter: 2021Q3

REPORT INFORMATION
  Report Type: Spontaneous
  Country: US (occurrence: US)
  Receive Date: 20210905
  Receipt Date: 20210905
  Transmission Date: 20211014
  Serious: Yes (Other)
  Sender: FDA-Public Use
  Company Number: None

PATIENT
  Age: 37 Year
  Sex: Female
  Weight: 90 kg

DRUGS (10)
  1. MONTELUKAST [Concomitant]
     Active Substance: MONTELUKAST SODIUM
  2. PANTOPRAZOLE [Concomitant]
     Active Substance: PANTOPRAZOLE
  3. ZYRTEC [Concomitant]
     Active Substance: CETIRIZINE HYDROCHLORIDE
  4. FENOFIBRATE. [Concomitant]
     Active Substance: FENOFIBRATE
  5. BACLOFEN. [Concomitant]
     Active Substance: BACLOFEN
  6. FEVERFEW [Concomitant]
     Active Substance: FEVERFEW
  7. RINVOQ [Suspect]
     Active Substance: UPADACITINIB
     Indication: RHEUMATOID ARTHRITIS
     Dosage: QUANTITY:1 TABLET(S);?
     Route: 048
     Dates: start: 20201214, end: 20210130
  8. TELMISARTAN. [Concomitant]
     Active Substance: TELMISARTAN
  9. DILTIAZEM. [Concomitant]
     Active Substance: DILTIAZEM
  10. MAGNESIUM [Concomitant]
     Active Substance: MAGNESIUM

REACTIONS (2)
  - Abdominal pain [None]
  - Lymphadenopathy [None]

NARRATIVE: CASE EVENT DATE: 20201226
